FAERS Safety Report 4644368-X (Version None)
Quarter: 2005Q2

REPORT INFORMATION
  Report Type: 
  Country: None (occurrence: None)
  Receive Date: 20050331
  Receipt Date: 20041222
  Transmission Date: 20051028
  Serious: No
  Sender: FDA-Public Use
  Company Number: 04P-163-0284416-00

PATIENT
  Age: 64 Year
  Sex: Female
  Weight: 109 kg

DRUGS (8)
  1. HUMIRA [Suspect]
     Dosage: SUBCUTANEOUS
     Route: 058
     Dates: start: 20041101, end: 20041201
  2. TELMISARTAN [Concomitant]
  3. ATENOLOL [Concomitant]
  4. DICLOFENAC [Concomitant]
  5. PANTOPRAZOLE [Concomitant]
  6. FOLIC ACID [Concomitant]
  7. ALPRAZOLAM [Concomitant]
  8. PROPACET 100 [Concomitant]

REACTIONS (9)
  - ASTHENIA [None]
  - CHILLS [None]
  - MEMORY IMPAIRMENT [None]
  - MICTURITION URGENCY [None]
  - PRURITUS [None]
  - RASH MACULAR [None]
  - THINKING ABNORMAL [None]
  - UNEVALUABLE EVENT [None]
  - URINARY INCONTINENCE [None]
